FAERS Safety Report 5065541-5 (Version None)
Quarter: 2006Q3

REPORT INFORMATION
  Report Type: 
  Country: None (occurrence: None)
  Receive Date: 20060731
  Receipt Date: 20060720
  Transmission Date: 20061208
  Serious: Yes (Hospitalization)
  Sender: FDA-Public Use
  Company Number: JP-JPN-A200602747

PATIENT
  Age: 86 Year
  Sex: Female

DRUGS (4)
  1. PAXIL [Suspect]
     Indication: DEPRESSIVE SYMPTOM
     Dosage: 10MG PER DAY
     Route: 048
     Dates: start: 20060707, end: 20060718
  2. SPIEGEL [Concomitant]
     Route: 048
  3. AMARYL [Concomitant]
     Route: 048
  4. GLUCOBAY [Concomitant]
     Route: 048

REACTIONS (1)
  - MUSCULAR WEAKNESS [None]
